FAERS Safety Report 4478608-7 (Version None)
Quarter: 2004Q4

REPORT INFORMATION
  Report Type: 
  Country: None (occurrence: None)
  Receive Date: 20040923
  Receipt Date: 20040810
  Transmission Date: 20050328
  Serious: No
  Sender: FDA-Public Use
  Company Number: 206768

PATIENT
  Age: 76 Year
  Sex: Male
  Weight: 69.8 kg

DRUGS (4)
  1. AVASTIN [Suspect]
     Indication: COLORECTAL CANCER METASTATIC
     Dosage: 360 MG, Q2W, INTRAVENOUS
     Route: 042
     Dates: start: 20040325
  2. FLUOROURACIL [Concomitant]
  3. OXALIPLATIN (OXALIPLATIN) [Concomitant]
  4. LEUCOVORIN (LEUCOVORIN CALCIUM) [Concomitant]

REACTIONS (1)
  - TREMOR [None]
